FAERS Safety Report 8992043 (Version 1)
Quarter: 2012Q4

REPORT INFORMATION
  Report Type: 
  Country: JP (occurrence: JP)
  Receive Date: 20121231
  Receipt Date: 20121231
  Transmission Date: 20130627
  Serious: Yes (Hospitalization, Other)
  Sender: FDA-Public Use
  Company Number: JP-OTSUKA-JP-2012-15784

PATIENT
  Age: 86 Year
  Sex: Female
  Weight: 43 kg

DRUGS (8)
  1. SAMSCA [Suspect]
     Indication: CARDIAC FAILURE CONGESTIVE
     Dosage: 7.5 Mg milligram(s), qam
     Route: 048
     Dates: start: 20120628, end: 20120706
  2. ALDACTONE A [Concomitant]
     Indication: CARDIAC FAILURE CHRONIC
     Dosage: 25 Mg milligram(s), qam
     Route: 048
     Dates: end: 20120731
  3. WARFARIN [Concomitant]
     Indication: THROMBOSIS PROPHYLAXIS
     Dosage: 1-2.5 mg, qpm
     Route: 048
  4. LASIX [Concomitant]
     Indication: CARDIAC FAILURE CHRONIC
     Dosage: 20 Mg milligram(s), bid
     Route: 048
     Dates: start: 20110324, end: 20120731
  5. FAMOTIDINE D [Concomitant]
     Indication: COLITIS ISCHAEMIC
     Dosage: 10 Mg milligram(s), bid
     Route: 048
     Dates: start: 20120328, end: 20120731
  6. FOLIAMIN [Concomitant]
     Dosage: 5 Mg milligram(s), tid
     Route: 048
     Dates: start: 20110415, end: 20120731
  7. JUVELA [Concomitant]
     Dosage: 50 Mg milligram(s), tid
     Route: 048
     Dates: start: 20110415, end: 20120731
  8. FERROMIA [Concomitant]
     Indication: IRON DEFICIENCY ANAEMIA
     Dosage: 50 Mg milligram(s), bid
     Route: 048

REACTIONS (8)
  - Liver disorder [Recovering/Resolving]
  - Renal impairment [Recovering/Resolving]
  - Subileus [Recovered/Resolved]
  - Abdominal pain [Unknown]
  - Hepatic enzyme increased [None]
  - Colitis ischaemic [None]
  - Cardiac failure congestive [None]
  - Drug-induced liver injury [None]
